FAERS Safety Report 6700696-5 (Version None)
Quarter: 2010Q2

REPORT INFORMATION
  Report Type: 
  Country: None (occurrence: None)
  Receive Date: 20100426
  Receipt Date: 20100416
  Transmission Date: 20101027
  Serious: Yes (Other)
  Sender: FDA-Public Use
  Company Number: 563976

PATIENT
  Sex: Male

DRUGS (3)
  1. PENTOSTATIN [Suspect]
     Indication: HAIRY CELL LEUKAEMIA
     Dosage: 4 MG/M 2 MILLIGRAM(S)/SQ. METER (15 DAY)
     Dates: start: 20100218, end: 20100305
  2. PENTOSTATIN [Suspect]
     Indication: HAIRY CELL LEUKAEMIA
     Dosage: 4 MG/M 2 MILLIGRAM(S)/SQ. METER (15 DAY)
     Dates: start: 20100228, end: 20100305
  3. BACTRIM [Concomitant]

REACTIONS (3)
  - APLASIA PURE RED CELL [None]
  - BLOOD LACTATE DEHYDROGENASE INCREASED [None]
  - HAEMOLYSIS [None]
